FAERS Safety Report 23534621 (Version 3)
Quarter: 2024Q1

REPORT INFORMATION
  Report Type: Spontaneous
  Country: JP (occurrence: JP)
  Receive Date: 20240217
  Receipt Date: 20240306
  Transmission Date: 20240410
  Serious: No
  Sender: FDA-Public Use
  Company Number: JP-TEVA-VS-3156939

PATIENT
  Age: 6 Decade
  Sex: Female

DRUGS (2)
  1. LANSOPRAZOLE [Suspect]
     Active Substance: LANSOPRAZOLE
     Indication: Prophylaxis
     Dosage: DOSAGE IS UNKNOWN?30
     Route: 048
     Dates: end: 2018
  2. LANSOPRAZOLE [Suspect]
     Active Substance: LANSOPRAZOLE
     Indication: Prophylaxis
     Dosage: 30MG
     Route: 048
     Dates: start: 2014

REACTIONS (3)
  - Liver function test increased [Unknown]
  - Dizziness [Unknown]
  - Product use in unapproved indication [Unknown]
